FAERS Safety Report 9577515 (Version 1)
Quarter: 2013Q4

REPORT INFORMATION
  Report Type: Spontaneous
  Country: US (occurrence: US)
  Receive Date: 20131001
  Receipt Date: 20131001
  Transmission Date: 20140711
  Serious: No
  Sender: FDA-Public Use
  Company Number: US-AMGEN-USASP2013008284

PATIENT
  Sex: Male

DRUGS (6)
  1. ENBREL [Suspect]
     Indication: PRODUCT USED FOR UNKNOWN INDICATION
     Dosage: 50 MG, QWK
     Route: 058
  2. ADVIL                              /00044201/ [Concomitant]
     Dosage: UNK
  3. GABAPENTIN [Concomitant]
     Dosage: 600 MG, UNK
  4. FOLIC ACID [Concomitant]
     Dosage: 1 MG, UNK
  5. METHOTREXATE [Concomitant]
     Dosage: (1GM)
  6. VITAMINE B COMPLEX [Concomitant]
     Dosage: 100

REACTIONS (1)
  - Sinusitis [Unknown]
